FAERS Safety Report 7026420-7 (Version None)
Quarter: 2010Q4

REPORT INFORMATION
  Report Type: 
  Country: None (occurrence: None)
  Receive Date: 20101004
  Receipt Date: 20100922
  Transmission Date: 20110411
  Serious: Yes (Other)
  Sender: FDA-Public Use
  Company Number: PHFR2010GB01014

PATIENT
  Age: 48 Year
  Sex: Female
  Weight: 71 kg

DRUGS (1)
  1. CLOZARIL [Suspect]
     Dosage: 25 MG ACCIDENTALLY
     Route: 048
     Dates: start: 20100301

REACTIONS (9)
  - BLOOD PRESSURE INCREASED [None]
  - CIRCULATORY COLLAPSE [None]
  - CONFUSIONAL STATE [None]
  - DEPRESSED LEVEL OF CONSCIOUSNESS [None]
  - GLOSSODYNIA [None]
  - MEDICATION ERROR [None]
  - MYDRIASIS [None]
  - OROPHARYNGEAL PAIN [None]
  - RASH [None]
